FAERS Safety Report 17128374 (Version 1)
Quarter: 2019Q4

REPORT INFORMATION
  Report Type: Other
  Country: US (occurrence: US)
  Receive Date: 20191209
  Receipt Date: 20191209
  Transmission Date: 20200122
  Serious: Yes (Other)
  Sender: FDA-Public Use
  Company Number: US-ACI HEALTHCARE LIMITED-2077604

PATIENT
  Age: 27 Year
  Sex: Female

DRUGS (4)
  1. BENZODIAZEPINES [Suspect]
     Active Substance: BENZODIAZEPINE
     Route: 065
  2. HEROIN [Suspect]
     Active Substance: DIAMORPHINE
     Route: 065
  3. BUPRENORPHINE. [Suspect]
     Active Substance: BUPRENORPHINE
     Route: 065
  4. GABAPENTIN. [Suspect]
     Active Substance: GABAPENTIN
     Indication: PRODUCT USED FOR UNKNOWN INDICATION
     Route: 065

REACTIONS (2)
  - Maternal use of illicit drugs [Unknown]
  - Maternal exposure during pregnancy [Unknown]
